FAERS Safety Report 5313488-9 (Version None)
Quarter: 2007Q2

REPORT INFORMATION
  Report Type: 
  Country: None (occurrence: None)
  Receive Date: 20070501
  Receipt Date: 20070425
  Transmission Date: 20071010
  Serious: Yes (Other)
  Sender: FDA-Public Use
  Company Number: FR-AVENTIS-200711343FR

PATIENT
  Age: 70 Year
  Sex: Female

DRUGS (5)
  1. KETEK [Suspect]
     Indication: SINUSITIS
     Route: 048
     Dates: start: 20070201, end: 20070205
  2. KETEK [Suspect]
     Route: 048
     Dates: start: 20070307, end: 20070307
  3. SOLUPRED                           /00016201/ [Concomitant]
     Indication: SINUSITIS
     Route: 048
     Dates: start: 20070201
  4. PYOSTACINE [Concomitant]
     Indication: SINUSITIS
     Dates: start: 20070122
  5. DAFALGAN                           /00020001/ [Concomitant]
     Indication: SINUSITIS
     Route: 048
     Dates: start: 20070307

REACTIONS (3)
  - HEPATITIS [None]
  - HEPATOCELLULAR DAMAGE [None]
  - VOMITING [None]
